FAERS Safety Report 11018964 (Version 2)
Quarter: 2015Q2

REPORT INFORMATION
  Report Type: Spontaneous
  Country: US (occurrence: US)
  Receive Date: 20150412
  Receipt Date: 20150525
  Transmission Date: 20150821
  Serious: Yes (Other)
  Sender: FDA-Public Use
  Company Number: US-JNJFOC-20100100408

PATIENT
  Age: 36 Year
  Sex: Female

DRUGS (1)
  1. LEVAQUIN [Suspect]
     Active Substance: LEVOFLOXACIN
     Indication: URINARY TRACT INFECTION
     Route: 048
     Dates: start: 20080220, end: 20080227

REACTIONS (4)
  - Depression [Unknown]
  - Tendonitis [Unknown]
  - Rotator cuff syndrome [Unknown]
  - Mood altered [Unknown]

NARRATIVE: CASE EVENT DATE: 200802
